FAERS Safety Report 13737665 (Version 1)
Quarter: 2017Q3

REPORT INFORMATION
  Report Type: Report from Study
  Country: US (occurrence: US)
  Receive Date: 20170710
  Receipt Date: 20170710
  Transmission Date: 20171127
  Serious: No
  Sender: FDA-Public Use
  Company Number: US-SAOL THERAPEUTICS-2016SAO00295

PATIENT
  Age: 45 Year
  Sex: Female

DRUGS (18)
  1. FENTANYL. [Suspect]
     Active Substance: FENTANYL
     Dosage: 50.08 ?G, \DAY
     Dates: start: 20140422, end: 20140519
  2. FENTANYL. [Suspect]
     Active Substance: FENTANYL
     Dosage: 114.97 ?G, \DAY
     Dates: start: 20141007, end: 20141106
  3. HYDROMORPHONE [Suspect]
     Active Substance: HYDROMORPHONE
     Dosage: 1.9985 ?G, \DAY
     Route: 037
     Dates: start: 20141208, end: 20150406
  4. FENTANYL. [Suspect]
     Active Substance: FENTANYL
     Dosage: 59.93 ?G, \DAY
     Route: 037
     Dates: start: 20140416, end: 20140422
  5. FENTANYL. [Suspect]
     Active Substance: FENTANYL
     Dosage: 72.92 ?G, \DAY
     Route: 037
     Dates: start: 20140519, end: 20141007
  6. BUPIVACAINE. [Suspect]
     Active Substance: BUPIVACAINE
     Dosage: 8.99 MG, \DAY
     Route: 037
     Dates: start: 20140416, end: 20140422
  7. BUPIVACAINE. [Suspect]
     Active Substance: BUPIVACAINE
     Dosage: 7.994 MG, \DAY
     Dates: start: 20141208, end: 20150406
  8. COMPOUNDED BACLOFEN [Suspect]
     Active Substance: BACLOFEN
     Dosage: 346.9 ?G, \DAY
     Route: 037
     Dates: start: 20140519, end: 20141007
  9. BUPIVACAINE. [Suspect]
     Active Substance: BUPIVACAINE
     Dosage: 4.994 MG, \DAY
     Dates: start: 20140519, end: 20141007
  10. COMPOUNDED BACLOFEN [Suspect]
     Active Substance: BACLOFEN
     Dosage: 350.6 ?G, \DAY
     Route: 037
     Dates: start: 20140422, end: 20140519
  11. COMPOUNDED BACLOFEN [Suspect]
     Active Substance: BACLOFEN
     Indication: PAIN
     Dosage: 419.5 ?G, \DAY
     Route: 037
     Dates: start: 20140416, end: 20140422
  12. COMPOUNDED BACLOFEN [Suspect]
     Active Substance: BACLOFEN
     Dosage: 603.6 ?G, \DAY
     Dates: start: 20141007, end: 20141106
  13. BUPIVACAINE. [Suspect]
     Active Substance: BUPIVACAINE
     Dosage: 7.512 MG, \DAY
     Dates: start: 20140422, end: 20140519
  14. BUPIVACAINE. [Suspect]
     Active Substance: BUPIVACAINE
     Dosage: 9.39 MG, \DAY
     Dates: start: 20141106, end: 20141208
  15. COMPOUNDED BACLOFEN [Suspect]
     Active Substance: BACLOFEN
     Dosage: 559.6 ?G, \DAY
     Dates: start: 20141208, end: 20150406
  16. FENTANYL. [Suspect]
     Active Substance: FENTANYL
     Dosage: 125.2 ?G, \DAY
     Dates: start: 20141106, end: 20141208
  17. COMPOUNDED BACLOFEN [Suspect]
     Active Substance: BACLOFEN
     Dosage: 657.3 ?G, \DAY
     Dates: start: 20141106, end: 20141208
  18. BUPIVACAINE. [Suspect]
     Active Substance: BUPIVACAINE
     Dosage: 8.622 MG, \DAY
     Dates: start: 20141007, end: 20141106

REACTIONS (8)
  - Burning sensation [Not Recovered/Not Resolved]
  - Dysuria [Recovered/Resolved]
  - Nausea [Recovered/Resolved]
  - Medical device site pain [Recovered/Resolved]
  - Hyperaesthesia [Not Recovered/Not Resolved]
  - Pain [Not Recovered/Not Resolved]
  - Vomiting [Recovered/Resolved]
  - Hypoaesthesia [Recovered/Resolved]

NARRATIVE: CASE EVENT DATE: 20140421
